FAERS Safety Report 16859228 (Version 2)
Quarter: 2019Q4

REPORT INFORMATION
  Report Type: Spontaneous
  Country: US (occurrence: US)
  Receive Date: 20190926
  Receipt Date: 20191008
  Transmission Date: 20200122
  Serious: No
  Sender: FDA-Public Use
  Company Number: US-ALEXION PHARMACEUTICALS INC.-A201914019

PATIENT
  Age: 66 Year
  Sex: Female
  Weight: 90.4 kg

DRUGS (1)
  1. SOLIRIS [Suspect]
     Active Substance: ECULIZUMAB
     Indication: MYASTHENIA GRAVIS
     Dosage: UNK
     Route: 065
     Dates: start: 201909

REACTIONS (3)
  - Acne [Unknown]
  - Diarrhoea [Unknown]
  - Anxiety [Unknown]
